FAERS Safety Report 20200484 (Version 7)
Quarter: 2022Q1

REPORT INFORMATION
  Report Type: Spontaneous
  Country: DE (occurrence: DE)
  Receive Date: 20211217
  Receipt Date: 20220302
  Transmission Date: 20220424
  Serious: Yes (Hospitalization, Other)
  Sender: FDA-Public Use
  Company Number: DE-LESVI-2021000602

PATIENT
  Age: 82 Year
  Sex: Female

DRUGS (12)
  1. CANDESARTAN CILEXETIL [Suspect]
     Active Substance: CANDESARTAN CILEXETIL
     Indication: Parkinson^s disease
     Dosage: 16 MILLIGRAM, QD
     Route: 065
  2. IBUPROFEN [Suspect]
     Active Substance: IBUPROFEN
     Indication: Parkinson^s disease
     Dosage: 200 MILLIGRAM, Q8HR
     Route: 065
  3. MIRTAZAPINE [Suspect]
     Active Substance: MIRTAZAPINE
     Indication: Parkinson^s disease
     Dosage: 30 MILLIGRAM, QD
     Route: 065
  4. OLANZAPINE [Suspect]
     Active Substance: OLANZAPINE
     Indication: Parkinson^s disease
     Dosage: 15 MILLIGRAM, QD
     Route: 065
  5. PANTOPRAZOLE [Suspect]
     Active Substance: PANTOPRAZOLE
     Indication: Parkinson^s disease
     Dosage: 20 MILLIGRAM, QD
     Route: 065
  6. ALENDRONIC ACID [Suspect]
     Active Substance: ALENDRONIC ACID
     Indication: Parkinson^s disease
     Dosage: 70 MILLIGRAM, 1/WEEK
     Route: 065
  7. CHOLECALCIFEROL [Suspect]
     Active Substance: CHOLECALCIFEROL
     Indication: Parkinson^s disease
     Dosage: 1 INTERNATIONAL UNIT, QD
     Route: 065
  8. CHOLECALCIFEROL [Suspect]
     Active Substance: CHOLECALCIFEROL
     Dosage: 1000 INTERNATIONAL UNIT, QD
     Route: 065
  9. DOXEPIN [Suspect]
     Active Substance: DOXEPIN
     Indication: Insomnia
     Dosage: 12.5 MILLIGRAM, QD
     Route: 065
  10. LEVOTHYROXINE [Suspect]
     Active Substance: LEVOTHYROXINE
     Indication: Parkinson^s disease
     Dosage: 62.5 MICROGRAM, QD
     Route: 016
  11. METAMIZOLE [Suspect]
     Active Substance: METAMIZOLE
     Indication: Parkinson^s disease
     Dosage: 500 MILLIGRAM, Q12H
     Route: 065
  12. URSODIOL [Suspect]
     Active Substance: URSODIOL
     Indication: Parkinson^s disease
     Dosage: 500 MILLIGRAM, QD
     Route: 065

REACTIONS (4)
  - Major depression [Unknown]
  - Psychotic symptom [Unknown]
  - Therapeutic product effect incomplete [Recovered/Resolved]
  - Insomnia [Unknown]
